FAERS Safety Report 14320461 (Version 1)
Quarter: 2017Q4

REPORT INFORMATION
  Report Type: Spontaneous
  Country: HR (occurrence: HR)
  Receive Date: 20171222
  Receipt Date: 20171222
  Transmission Date: 20180321
  Serious: Yes (Death, Life-Threatening, Hospitalization, Other)
  Sender: FDA-Public Use
  Company Number: HR-BAUSCH-BL-2017-034403

PATIENT
  Age: 70 Year
  Sex: Female

DRUGS (6)
  1. METFORMIN [Suspect]
     Active Substance: METFORMIN HYDROCHLORIDE
     Indication: TYPE 2 DIABETES MELLITUS
     Route: 065
  2. INSULIN ASPART, INSULIN ASPART PROTAMINE [Suspect]
     Active Substance: INSULIN ASPART
     Indication: TYPE 2 DIABETES MELLITUS
     Dosage: 50 PERCENT INSULIN ASPART/50 PERCENT PROTAMINE-CRYSTALLIZED INSULIN (26 PLUS 16 PLUS 20 IU)
     Route: 065
  3. AMLODIPIN [Concomitant]
     Active Substance: AMLODIPINE BESYLATE
     Indication: PRODUCT USED FOR UNKNOWN INDICATION
     Route: 065
  4. GLIMEPIRIDE. [Concomitant]
     Active Substance: GLIMEPIRIDE
     Indication: TYPE 2 DIABETES MELLITUS
     Route: 065
  5. BISOPROLOL [Concomitant]
     Active Substance: BISOPROLOL
     Indication: PRODUCT USED FOR UNKNOWN INDICATION
     Route: 065
  6. FUROSEMID [Concomitant]
     Active Substance: FUROSEMIDE
     Indication: PRODUCT USED FOR UNKNOWN INDICATION
     Route: 065

REACTIONS (25)
  - Atrial fibrillation [Unknown]
  - Dry skin [Unknown]
  - Vomiting [Fatal]
  - Diarrhoea [Fatal]
  - PO2 increased [Fatal]
  - Dehydration [Unknown]
  - Azotaemia [Unknown]
  - Respiratory failure [Unknown]
  - Hypoglycaemia [Unknown]
  - Lactic acidosis [Fatal]
  - Dyspnoea [Fatal]
  - Bradycardia [Unknown]
  - Renal failure [Unknown]
  - Blood chloride decreased [Unknown]
  - Blood pH decreased [Fatal]
  - Blood potassium increased [Unknown]
  - Cardio-respiratory arrest [Fatal]
  - Blood bicarbonate increased [Fatal]
  - Pallor [Unknown]
  - Skin turgor decreased [Unknown]
  - Asthenia [Fatal]
  - Hypothermia [Fatal]
  - Hypotension [Fatal]
  - PCO2 decreased [Fatal]
  - Loss of consciousness [Recovered/Resolved]
